FAERS Safety Report 9143696 (Version 2)
Quarter: 2013Q4

REPORT INFORMATION
  Report Type: Spontaneous
  Country: GB (occurrence: GB)
  Receive Date: 20130306
  Receipt Date: 20131001
  Transmission Date: 20140711
  Serious: Yes (Hospitalization)
  Sender: FDA-Public Use
  Company Number: GB-ROCHE-1197724

PATIENT
  Age: 51 Year
  Sex: Male
  Weight: 68 kg

DRUGS (7)
  1. ROACTEMRA [Suspect]
     Indication: PRODUCT USED FOR UNKNOWN INDICATION
     Route: 065
  2. FOLIC ACID [Concomitant]
     Route: 065
  3. HYDROXYCHLOROQUINE [Concomitant]
     Route: 065
  4. IBUPROFEN [Concomitant]
     Route: 065
  5. METHOTREXATE [Concomitant]
     Route: 065
  6. OMEPRAZOLE [Concomitant]
     Route: 065
  7. PREDNISOLONE [Concomitant]
     Route: 065
     Dates: start: 20130116

REACTIONS (4)
  - Cerebral infarction [Recovered/Resolved]
  - Cerebrovascular accident [Recovered/Resolved]
  - Dysarthria [Recovered/Resolved]
  - Aphasia [Recovered/Resolved]
